FAERS Safety Report 4286773-X (Version None)
Quarter: 2004Q1

REPORT INFORMATION
  Report Type: 
  Country: None (occurrence: None)
  Receive Date: 20040206
  Receipt Date: 20020612
  Transmission Date: 20041129
  Serious: Yes (Life-Threatening, Hospitalization)
  Sender: FDA-Public Use
  Company Number: MX-ROCHE-315255

PATIENT
  Age: 27 Year
  Sex: Male
  Weight: 66 kg

DRUGS (10)
  1. MYCOPHENOLATE MOFETIL [Suspect]
     Route: 048
     Dates: start: 20020522, end: 20020719
  2. MYCOPHENOLATE MOFETIL [Suspect]
     Route: 048
     Dates: start: 20020725
  3. SANDIMUN [Concomitant]
     Dates: start: 20020522
  4. PREDNISONE [Concomitant]
     Dates: start: 20020522
  5. BACTRIM [Concomitant]
     Dates: start: 20020522, end: 20020712
  6. OMEPRAZOLE [Concomitant]
     Dates: start: 20020523, end: 20021122
  7. LOSARTAN [Concomitant]
     Dates: start: 20020523
  8. GANCYKLOVIR [Concomitant]
     Dates: start: 20020522, end: 20020712
  9. NIFEDIPINE [Concomitant]
     Dates: start: 20020522, end: 20020712
  10. NYSTATIN [Concomitant]
     Dates: start: 20020523, end: 20020712

REACTIONS (4)
  - BLOOD GASES ABNORMAL [None]
  - INTESTINAL OBSTRUCTION [None]
  - PNEUMONIA [None]
  - RESPIRATORY FAILURE [None]
